FAERS Safety Report 4512140-7 (Version None)
Quarter: 2004Q4

REPORT INFORMATION
  Report Type: 
  Country: None (occurrence: None)
  Receive Date: 20041129
  Receipt Date: 20040216
  Transmission Date: 20050328
  Serious: No
  Sender: FDA-Public Use
  Company Number: US-GLAXOSMITHKLINE-A0498356A

PATIENT
  Age: 41 Year
  Sex: Female

DRUGS (2)
  1. LANOXIN [Suspect]
     Indication: TACHYCARDIA
     Dosage: 125MCG PER DAY
     Route: 048
     Dates: end: 20040212
  2. UNKNOWN MEDICATION [Concomitant]

REACTIONS (3)
  - DIZZINESS [None]
  - FACE OEDEMA [None]
  - URTICARIA [None]
